FAERS Safety Report 11809462 (Version 1)
Quarter: 2015Q4

REPORT INFORMATION
  Report Type: Report from Study
  Country: FR (occurrence: FR)
  Receive Date: 20151208
  Receipt Date: 20151208
  Transmission Date: 20160305
  Serious: Yes (Hospitalization, Other)
  Sender: FDA-Public Use
  Company Number: FR-BRISTOL-MYERS SQUIBB COMPANY-12228862

PATIENT
  Age: 1 Year
  Sex: Male
  Weight: 3.95 kg

DRUGS (6)
  1. COMBIVIR [Concomitant]
     Active Substance: LAMIVUDINE\ZIDOVUDINE
     Indication: PRODUCT USED FOR UNKNOWN INDICATION
     Dosage: UNK
     Route: 064
     Dates: end: 20001113
  2. EPIVIR [Suspect]
     Active Substance: LAMIVUDINE
     Indication: PROPHYLAXIS AGAINST HIV INFECTION
     Dosage: 0.9 ML, BID
     Route: 048
     Dates: start: 20001113, end: 20010104
  3. VIRAMUNE [Suspect]
     Active Substance: NEVIRAPINE
     Indication: PROPHYLAXIS AGAINST HIV INFECTION
     Dosage: UNK
     Route: 048
     Dates: start: 20001113, end: 20001113
  4. EFAVIRENZ [Suspect]
     Active Substance: EFAVIRENZ
     Indication: PRODUCT USED FOR UNKNOWN INDICATION
     Route: 064
  5. VIRAMUNE [Concomitant]
     Active Substance: NEVIRAPINE
     Indication: PRODUCT USED FOR UNKNOWN INDICATION
     Dosage: EXPOSURE BEGAN AT 7 MONTHS OF GESTATION.
     Route: 064
     Dates: end: 20001113
  6. RETROVIR [Suspect]
     Active Substance: ZIDOVUDINE
     Indication: PROPHYLAXIS AGAINST HIV INFECTION
     Dosage: 0.9 ML, UNK
     Route: 048
     Dates: start: 20001113, end: 20010104

REACTIONS (20)
  - Nasopharyngitis [Unknown]
  - Disturbance in attention [Unknown]
  - Cerebral disorder [Not Recovered/Not Resolved]
  - Eczema [Unknown]
  - Sleep disorder [Unknown]
  - Brain stem auditory evoked response abnormal [Not Recovered/Not Resolved]
  - Psychomotor retardation [Unknown]
  - Blood creatine phosphokinase increased [Unknown]
  - Fat necrosis [Unknown]
  - Gamma-glutamyltransferase increased [Unknown]
  - Hypertonia [Unknown]
  - Blood lactate dehydrogenase increased [Unknown]
  - Abnormal behaviour [Unknown]
  - Rhinitis [Unknown]
  - Foetal exposure during pregnancy [Recovered/Resolved]
  - Metabolic disorder [Not Recovered/Not Resolved]
  - Ear disorder [Unknown]
  - Anaemia [Unknown]
  - Learning disorder [Unknown]
  - Molluscum contagiosum [Unknown]

NARRATIVE: CASE EVENT DATE: 200011
